FAERS Safety Report 21555696 (Version 1)
Quarter: 2022Q4

REPORT INFORMATION
  Report Type: Spontaneous
  Country: US (occurrence: US)
  Receive Date: 20221104
  Receipt Date: 20221104
  Transmission Date: 20230113
  Serious: No
  Sender: FDA-Public Use
  Company Number: US-TRIS PHARMA, INC.-22US010511

PATIENT

DRUGS (1)
  1. DYANAVEL XR [Suspect]
     Active Substance: AMPHETAMINE
     Indication: Product used for unknown indication
     Dosage: 20 MILLIGRAM

REACTIONS (1)
  - Drug effect less than expected [Unknown]
